FAERS Safety Report 4781661-4 (Version None)
Quarter: 2005Q3

REPORT INFORMATION
  Report Type: 
  Country: None (occurrence: None)
  Receive Date: 20050914
  Receipt Date: 20050415
  Transmission Date: 20060218
  Serious: Yes (Hospitalization)
  Sender: FDA-Public Use
  Company Number: 163-20785-05040366

PATIENT
  Age: 57 Year
  Sex: Female

DRUGS (1)
  1. THALOMID [Suspect]
     Indication: POST LAMINECTOMY SYNDROME
     Dosage: 100MG TITRATED TO 400MG OR MAXIMUM TO TOLERATE DOSE, DAILY, ORAL
     Route: 048
     Dates: start: 20050110, end: 20050321

REACTIONS (2)
  - ABDOMINAL PAIN [None]
  - SMALL INTESTINAL OBSTRUCTION [None]
